FAERS Safety Report 13691774 (Version 5)
Quarter: 2024Q2

REPORT INFORMATION
  Report Type: Spontaneous
  Country: FR (occurrence: FR)
  Receive Date: 20170626
  Receipt Date: 20240628
  Transmission Date: 20240716
  Serious: Yes (Hospitalization, Disabling, Congenital Anomaly, Other)
  Sender: FDA-Public Use
  Company Number: FR-ABBVIE-17P-056-2019919-00

PATIENT
  Sex: Female

DRUGS (2)
  1. VALPROATE SODIUM [Suspect]
     Active Substance: VALPROATE SODIUM
     Indication: Maternal exposure timing unspecified
     Route: 064
  2. FOLIC ACID [Concomitant]
     Active Substance: FOLIC ACID
     Indication: Maternal exposure timing unspecified
     Route: 064

REACTIONS (80)
  - Bradycardia [Unknown]
  - Foetal anticonvulsant syndrome [Unknown]
  - Tooth development disorder [Unknown]
  - Pharyngeal disorder [Unknown]
  - Pallor [Unknown]
  - Heart disease congenital [Unknown]
  - Syncope [Unknown]
  - Dysmorphism [Unknown]
  - Impulsive behaviour [Unknown]
  - Hypertelorism [Unknown]
  - Ear disorder [Unknown]
  - Nasal disorder [Unknown]
  - Pharyngitis [Unknown]
  - Laryngeal disorder [Unknown]
  - Psychomotor skills impaired [Unknown]
  - Bone neoplasm [Not Recovered/Not Resolved]
  - Thrombosis [Unknown]
  - Loss of personal independence in daily activities [Unknown]
  - Appendicitis [Unknown]
  - Deafness [Unknown]
  - Macrognathia [Unknown]
  - Learning disorder [Unknown]
  - Thoracic outlet syndrome [Unknown]
  - Emotional distress [Unknown]
  - Heterophoria [Unknown]
  - Vomiting [Unknown]
  - Memory impairment [Unknown]
  - Deformity of orbit [Unknown]
  - Stenosis [Unknown]
  - Scoliosis [Unknown]
  - Syndactyly [Unknown]
  - Bicuspid aortic valve [Unknown]
  - Appendicectomy [Unknown]
  - Aortic valve incompetence [Unknown]
  - Salivary gland mucocoele [Unknown]
  - Coarctation of the aorta [Unknown]
  - Cardiac murmur [Unknown]
  - Foot deformity [Unknown]
  - Tooth hypoplasia [Unknown]
  - Rhinitis [Unknown]
  - Osteofibroma [Unknown]
  - Auditory neuropathy spectrum disorder [Unknown]
  - Self esteem decreased [Unknown]
  - Attention deficit hyperactivity disorder [Unknown]
  - Otitis media chronic [Unknown]
  - Presyncope [Unknown]
  - Nasopharyngitis [Unknown]
  - Executive dysfunction [Unknown]
  - Communication disorder [Unknown]
  - Fine motor skill dysfunction [Unknown]
  - Cognitive disorder [Unknown]
  - Obsessive-compulsive disorder [Unknown]
  - Disorientation [Unknown]
  - Behaviour disorder [Unknown]
  - Hand deformity [Unknown]
  - Skeletal dysplasia [Unknown]
  - Fibrous dysplasia of jaw [Unknown]
  - Refraction disorder [Unknown]
  - Suicidal ideation [Unknown]
  - Fatigue [Unknown]
  - Gastrooesophageal reflux disease [Unknown]
  - Dyspnoea exertional [Unknown]
  - Oropharyngeal discomfort [Unknown]
  - Electrocardiogram abnormal [Unknown]
  - Lacrimation increased [Unknown]
  - Enuresis [Unknown]
  - Headache [Unknown]
  - Clinodactyly [Unknown]
  - Brachydactyly [Unknown]
  - Spina bifida [Unknown]
  - Hypersensitivity [Unknown]
  - Foetal exposure during pregnancy [Unknown]
  - Irritability [Unknown]
  - Pelvic misalignment [Unknown]
  - Regurgitation [Unknown]
  - Conjunctivitis [Unknown]
  - Cough [Unknown]
  - Tympanosclerosis [Unknown]
  - Asthenia [Unknown]
  - Catarrh [Unknown]
